FAERS Safety Report 17979786 (Version 1)
Quarter: 2020Q3

REPORT INFORMATION
  Report Type: Spontaneous
  Country: ES (occurrence: ES)
  Receive Date: 20200703
  Receipt Date: 20200703
  Transmission Date: 20201103
  Serious: Yes (Other)
  Sender: FDA-Public Use
  Company Number: NVSC2020ES170725

PATIENT
  Age: 75 Year
  Sex: Female

DRUGS (10)
  1. SODIUM VALPROATE [Suspect]
     Active Substance: VALPROATE SODIUM
     Indication: CLUSTER HEADACHE
     Dosage: 500 MG, QD
     Route: 048
  2. TOPIRAMATE. [Suspect]
     Active Substance: TOPIRAMATE
     Indication: CLUSTER HEADACHE
     Route: 048
  3. LAMOTRIGINE. [Suspect]
     Active Substance: LAMOTRIGINE
     Indication: CLUSTER HEADACHE
     Dosage: 50 MG DAILY
     Route: 048
  4. INDOMETACIN [Suspect]
     Active Substance: INDOMETHACIN
     Indication: CLUSTER HEADACHE
     Route: 048
  5. PREDNISONE. [Suspect]
     Active Substance: PREDNISONE
     Indication: CLUSTER HEADACHE
     Dosage: 60 MG, QD
     Route: 048
  6. GABAPENTIN. [Concomitant]
     Active Substance: GABAPENTIN
     Indication: CLUSTER HEADACHE
     Dosage: 1200 MG, QD
     Route: 048
  7. ZONISAMIDE. [Suspect]
     Active Substance: ZONISAMIDE
     Indication: CLUSTER HEADACHE
  8. VERAPAMIL [Suspect]
     Active Substance: VERAPAMIL HYDROCHLORIDE
     Indication: CLUSTER HEADACHE
     Dosage: 120 MG, Q12H
     Route: 048
  9. ZONISAMIDE. [Suspect]
     Active Substance: ZONISAMIDE
     Indication: CLUSTER HEADACHE
     Dosage: 100 MG, Q12H
     Route: 048
  10. LITHIUM. [Suspect]
     Active Substance: LITHIUM
     Indication: CLUSTER HEADACHE
     Dosage: FOR SHORT TIME
     Route: 048

REACTIONS (9)
  - Weight decreased [Unknown]
  - Drug ineffective [Unknown]
  - Tremor [Unknown]
  - Palpitations [Unknown]
  - Tachycardia [Unknown]
  - Depression [Unknown]
  - Dizziness [Unknown]
  - Vomiting [Unknown]
  - Depressed mood [Unknown]
